FAERS Safety Report 9160001 (Version 1)
Quarter: 2013Q1

REPORT INFORMATION
  Report Type: Spontaneous
  Country: US (occurrence: None)
  Receive Date: 20130214
  Receipt Date: 20130214
  Transmission Date: 20140127
  Serious: Yes (Hospitalization, Other)
  Sender: FDA-Public Use
  Company Number: DKLU1076035

PATIENT
  Age: 6 Month
  Sex: Male

DRUGS (4)
  1. SABRIL (FOR ORAL SOLUTION) (SABRIL) (VIGABATRIN) (500 MG, POWDER FOR ORAL SOLUTION) [Suspect]
     Indication: INFANTILE SPASMS
     Dates: start: 20111222
  2. KEPPRA (LEVETIRACETAM) [Concomitant]
  3. PHENOBARBITAL (PHENOBARBITAL) [Concomitant]
  4. ATIVAN (LORAZEPAM) [Concomitant]

REACTIONS (5)
  - Drug ineffective [None]
  - Grand mal convulsion [None]
  - Respiratory syncytial virus infection [None]
  - Gastrointestinal disorder [None]
  - Drug intolerance [None]
